FAERS Safety Report 8851639 (Version 2)
Quarter: 2012Q4

REPORT INFORMATION
  Report Type: 
  Country: GB (occurrence: GB)
  Receive Date: 20121022
  Receipt Date: 20121106
  Transmission Date: 20130627
  Serious: Yes (Other)
  Sender: FDA-Public Use
  Company Number: GB-ACCORD-014981

PATIENT
  Age: 78 Year
  Sex: Female
  Weight: 57.1 kg

DRUGS (1)
  1. IRINOTECAN HYDROCHLORIDE [Suspect]
     Indication: METASTATIC COLORECTAL CANCER
     Dosage: Cyclical, 250 mg, every 2 weeks
     Route: 042
     Dates: start: 20120808

REACTIONS (5)
  - Dizziness [Recovered/Resolved]
  - Aphasia [Recovered/Resolved]
  - Speech disorder [Recovered/Resolved]
  - Confusional state [Recovered/Resolved]
  - Blood pressure increased [Recovered/Resolved]
